FAERS Safety Report 19891535 (Version 1)
Quarter: 2021Q3

REPORT INFORMATION
  Report Type: Spontaneous
  Country: NL (occurrence: NL)
  Receive Date: 20210928
  Receipt Date: 20210928
  Transmission Date: 20211014
  Serious: Yes (Life-Threatening, Other)
  Sender: FDA-Public Use
  Company Number: NL-ORGANON-O2109NLD001912

PATIENT
  Age: 85 Year
  Sex: Female

DRUGS (2)
  1. SIMVASTATIN. [Suspect]
     Active Substance: SIMVASTATIN
     Indication: MYOCARDIAL INFARCTION
     Dosage: 1 PER DAY
     Dates: start: 202109, end: 20210906
  2. MICONAZOL [MICONAZOLE] [Suspect]
     Active Substance: MICONAZOLE
     Dosage: AFTER START MICRONAZOL ORAL DAILY 2 9 MUSCLE WEAKNESS DEVELOPED AND PAIN IN MUSCLES. CREATIN KINASE
     Route: 048

REACTIONS (5)
  - Blood creatine phosphokinase increased [Recovered/Resolved]
  - Rhabdomyolysis [Recovered/Resolved]
  - Drug interaction [Recovered/Resolved]
  - Muscular weakness [Recovered/Resolved]
  - Myalgia [Recovered/Resolved]

NARRATIVE: CASE EVENT DATE: 20210902
